FAERS Safety Report 21789658 (Version 2)
Quarter: 2024Q1

REPORT INFORMATION
  Report Type: Spontaneous
  Country: FR (occurrence: None)
  Receive Date: 20221228
  Receipt Date: 20240202
  Transmission Date: 20240410
  Serious: Yes (Hospitalization, Other)
  Sender: FDA-Public Use
  Company Number: 2022A414222

PATIENT
  Age: 66 Year
  Sex: Female
  Weight: 65 kg

DRUGS (11)
  1. ESOMEPRAZOLE [Suspect]
     Active Substance: ESOMEPRAZOLE
     Indication: Product used for unknown indication
     Route: 048
  2. CEFEPIME [Suspect]
     Active Substance: CEFEPIME HYDROCHLORIDE
     Indication: Enterobacter bacteraemia
     Route: 042
     Dates: start: 20221030, end: 20221114
  3. CEFEPIME [Suspect]
     Active Substance: CEFEPIME HYDROCHLORIDE
     Indication: Enterobacter bacteraemia
     Route: 042
     Dates: start: 20221114, end: 20221119
  4. DAPTOMYCIN [Suspect]
     Active Substance: DAPTOMYCIN
     Indication: Postoperative wound infection
     Route: 042
     Dates: start: 20221101, end: 20221121
  5. CHLORHYDRATE DE CIPROFLOXACINE [Concomitant]
     Indication: Osteitis
     Dates: start: 20221115
  6. CHLORHYDRATE DE CIPROFLOXACINE [Concomitant]
     Indication: Lung disorder
     Dates: start: 20221115
  7. CHLORHYDRATE DE CIPROFLOXACINE [Concomitant]
     Indication: Bacteraemia
     Dates: start: 20221115
  8. CIPROFLOXACIN HYDROCHLORIDE [Concomitant]
     Active Substance: CIPROFLOXACIN HYDROCHLORIDE
     Indication: Osteitis
     Route: 042
     Dates: start: 20221115
  9. CIPROFLOXACIN HYDROCHLORIDE [Concomitant]
     Active Substance: CIPROFLOXACIN HYDROCHLORIDE
     Indication: Lung disorder
     Route: 042
     Dates: start: 20221115
  10. CIPROFLOXACIN HYDROCHLORIDE [Concomitant]
     Active Substance: CIPROFLOXACIN HYDROCHLORIDE
     Indication: Bacteraemia
     Route: 042
     Dates: start: 20221115
  11. CIPROFLOXACIN HYDROCHLORIDE [Concomitant]
     Active Substance: CIPROFLOXACIN HYDROCHLORIDE
     Route: 048

REACTIONS (2)
  - Eosinophilia [Recovered/Resolved]
  - Acute kidney injury [Recovered/Resolved]

NARRATIVE: CASE EVENT DATE: 20221116
